FAERS Safety Report 8117011-5 (Version None)
Quarter: 2012Q1

REPORT INFORMATION
  Report Type: 
  Country: None (occurrence: None)
  Receive Date: 20120206
  Receipt Date: 20120201
  Transmission Date: 20120608
  Serious: Yes (Other)
  Sender: FDA-Public Use
  Company Number: US-GILEAD-2011-0047642

PATIENT
  Sex: Female

DRUGS (5)
  1. LETAIRIS [Suspect]
     Indication: PULMONARY HYPERTENSION
     Dosage: 5 MG, UNK
     Route: 048
     Dates: start: 20111129
  2. LISINOPRIL [Concomitant]
     Dosage: 40 MG, UNK
     Dates: start: 20090401
  3. LETAIRIS [Suspect]
     Indication: SCLERODERMA
  4. LASIX [Concomitant]
     Dosage: 40 MG, UNK
     Dates: start: 20110601
  5. LASIX [Concomitant]
     Dosage: 20 UNK, UNK

REACTIONS (1)
  - BLOOD PRESSURE DECREASED [None]
